FAERS Safety Report 8550192-8 (Version None)
Quarter: 2012Q3

REPORT INFORMATION
  Report Type: 
  Country: None (occurrence: None)
  Receive Date: 20120730
  Receipt Date: 20120719
  Transmission Date: 20120928
  Serious: Yes (Other)
  Sender: FDA-Public Use
  Company Number: US-ACTELION-A-US2012-68557

PATIENT
  Age: 17 Year
  Sex: Female

DRUGS (3)
  1. SILDENAFIL [Concomitant]
  2. TRACLEER [Suspect]
     Indication: PULMONARY ARTERIAL HYPERTENSION
     Dosage: UNK
     Route: 048
  3. REMODULIN [Concomitant]

REACTIONS (4)
  - TREMOR [None]
  - CONVULSION [None]
  - CYANOSIS [None]
  - EYE MOVEMENT DISORDER [None]
